FAERS Safety Report 15826452 (Version 1)
Quarter: 2019Q1

REPORT INFORMATION
  Report Type: Other
  Country: DK (occurrence: DK)
  Receive Date: 20190115
  Receipt Date: 20190115
  Transmission Date: 20190417
  Serious: Yes (Death)
  Sender: FDA-Public Use
  Company Number: DK-ARALEZ PHARMACEUTICALS R+D INC.-2019-ARA-000045

PATIENT
  Age: 52 Year
  Sex: Male

DRUGS (4)
  1. CENTYL MED KALIUMKLORID [Suspect]
     Active Substance: BENDROFLUMETHIAZIDE\POTASSIUM CHLORIDE
     Indication: HYPERTENSION
     Dosage: STYRKE: 2,5 + 573 MG, 1 DF DAILY
     Route: 048
     Dates: start: 20180326, end: 20180416
  2. CORODIL COMP [Suspect]
     Active Substance: ENALAPRIL MALEATE\HYDROCHLOROTHIAZIDE
     Indication: HYPERTENSION
     Dosage: 0.5 DF DAILY
     Route: 048
     Dates: start: 20180309
  3. METOPROLOL SUCCINATE. [Suspect]
     Active Substance: METOPROLOL SUCCINATE
     Indication: HYPERTENSION
     Dosage: 25 MG DAILY
     Route: 048
     Dates: start: 20180322, end: 20180326
  4. AMLODIPIN                          /00972401/ [Suspect]
     Active Substance: AMLODIPINE BESYLATE
     Indication: HYPERTENSION
     Dosage: 5 MG DAILY
     Route: 048
     Dates: start: 20180420

REACTIONS (7)
  - Anxiety [Fatal]
  - Obsessive-compulsive disorder [Fatal]
  - Suicidal ideation [Fatal]
  - Suicide attempt [Fatal]
  - Completed suicide [Fatal]
  - Depression [Fatal]
  - Restlessness [Fatal]

NARRATIVE: CASE EVENT DATE: 2018
